FAERS Safety Report 8795099 (Version 3)
Quarter: 2018Q4

REPORT INFORMATION
  Report Type: Spontaneous
  Country: US (occurrence: US)
  Receive Date: 20120918
  Receipt Date: 20181006
  Transmission Date: 20190205
  Serious: Yes (Other)
  Sender: FDA-Public Use
  Company Number: US-009507513-1202USA04352B1

PATIENT
  Age: 0 Day
  Sex: Male
  Weight: 4.55 kg

DRUGS (3)
  1. ISENTRESS [Suspect]
     Active Substance: RALTEGRAVIR POTASSIUM
     Dosage: 800 MG, QD. EARLIEST TRIMESTER OF EXPOSURE 2
     Route: 064
     Dates: start: 20110921
  2. COMBIVIR [Suspect]
     Active Substance: LAMIVUDINE\ZIDOVUDINE
     Dosage: UNK
     Route: 064
  3. RETROVIR [Suspect]
     Active Substance: ZIDOVUDINE
     Dosage: UNK
     Route: 064

REACTIONS (7)
  - Birth trauma [Unknown]
  - Respiratory depression [Unknown]
  - Monoplegia [Unknown]
  - Foetal exposure during pregnancy [Recovered/Resolved]
  - Large for dates baby [Unknown]
  - Premature baby [Unknown]
  - Dyskinesia [Unknown]

NARRATIVE: CASE EVENT DATE: 20111126
